FAERS Safety Report 7240322-2 (Version None)
Quarter: 2011Q1

REPORT INFORMATION
  Report Type: 
  Country: None (occurrence: None)
  Receive Date: 20110124
  Receipt Date: 20110113
  Transmission Date: 20110831
  Serious: Yes (Hospitalization, Other)
  Sender: FDA-Public Use
  Company Number: US-SANOFI-AVENTIS-2011SA003218

PATIENT
  Age: 63 Year
  Sex: Male

DRUGS (4)
  1. LOVENOX [Suspect]
     Indication: ANTICOAGULANT THERAPY
     Route: 065
     Dates: start: 20101226
  2. LOVENOX [Suspect]
     Route: 065
  3. LOVENOX [Suspect]
     Route: 065
     Dates: start: 20110106, end: 20110111
  4. LOVENOX [Suspect]
     Route: 065
     Dates: start: 20110112, end: 20110113

REACTIONS (5)
  - CONTUSION [None]
  - CONVULSION [None]
  - BLOOD BLISTER [None]
  - PROCEDURAL VOMITING [None]
  - PERITONEAL HAEMORRHAGE [None]
